FAERS Safety Report 6409232-4 (Version None)
Quarter: 2009Q4

REPORT INFORMATION
  Report Type: 
  Country: None (occurrence: None)
  Receive Date: 20091021
  Receipt Date: 20091014
  Transmission Date: 20100525
  Serious: Yes (Other)
  Sender: FDA-Public Use
  Company Number: US-GILEAD-2009-0024239

PATIENT
  Sex: Male
  Weight: 74.91 kg

DRUGS (16)
  1. LETAIRIS [Suspect]
     Indication: PULMONARY ARTERIAL HYPERTENSION
     Route: 048
     Dates: start: 20090730
  2. WARFARIN SODIUM [Concomitant]
  3. HYDROCHLOROTHIAZIDE [Concomitant]
  4. ATENOLOL [Concomitant]
  5. SPIRIVA [Concomitant]
  6. NIFEDIPINE [Concomitant]
  7. CRESTOR [Concomitant]
  8. ALLOPURINOL [Concomitant]
  9. PREDNISONE [Concomitant]
  10. FOSAMAX [Concomitant]
  11. UROXATRAL [Concomitant]
  12. ANDROGEL 1% GEL [Concomitant]
  13. COLCHICINE [Concomitant]
  14. PREVACID [Concomitant]
  15. NATURAL TEARS DROPS [Concomitant]
  16. FOLIC ACID [Concomitant]

REACTIONS (6)
  - ATRIAL FIBRILLATION [None]
  - DYSPNOEA [None]
  - OEDEMA PERIPHERAL [None]
  - RIGHT VENTRICULAR FAILURE [None]
  - WEIGHT INCREASED [None]
  - WHEEZING [None]
